FAERS Safety Report 6168773-8 (Version None)
Quarter: 2009Q2

REPORT INFORMATION
  Report Type: 
  Country: None (occurrence: None)
  Receive Date: 20090424
  Receipt Date: 20090424
  Transmission Date: 20091009
  Serious: Yes (Other)
  Sender: FDA-Public Use
  Company Number: None

PATIENT
  Age: 57 Year
  Sex: Male

DRUGS (2)
  1. VARENICLINE [Suspect]
     Indication: SMOKING CESSATION THERAPY
     Dosage: 0.5 MG EVERY DAY PO
     Route: 048
     Dates: start: 20090326, end: 20090413
  2. TRAZODONE HCL [Suspect]
     Dosage: 25 MG AT BEDTIME PO
     Route: 048
     Dates: start: 20090324, end: 20090417

REACTIONS (2)
  - COGNITIVE DISORDER [None]
  - DIZZINESS [None]
